FAERS Safety Report 18186835 (Version 1)
Quarter: 2020Q3

REPORT INFORMATION
  Report Type: Spontaneous
  Country: US (occurrence: US)
  Receive Date: 20200824
  Receipt Date: 20200824
  Transmission Date: 20201103
  Serious: Yes (Other)
  Sender: FDA-Public Use
  Company Number: None

PATIENT

DRUGS (1)
  1. CREST 3D WHITESTRIPS DENTAL WHITENING KIT, VERSION UNKNOWN (HYDROGEN PEROXIDE 5.3?14%) STRIP, 1STRIP [Suspect]
     Active Substance: HYDROGEN PEROXIDE
     Dosage: ?          OTHER DOSE:USED A FEW TIMES ;OTHER ROUTE:INTRAORAL?

REACTIONS (4)
  - Toothache [None]
  - Tooth discolouration [None]
  - Tooth loss [None]
  - Tooth fracture [None]
